FAERS Safety Report 12615379 (Version 2)
Quarter: 2016Q4

REPORT INFORMATION
  Report Type: Report from Study
  Country: JP (occurrence: JP)
  Receive Date: 20160802
  Receipt Date: 20161227
  Transmission Date: 20170207
  Serious: Yes (Life-Threatening, Other)
  Sender: FDA-Public Use
  Company Number: JP-OTSUKA-2016_018384

PATIENT
  Age: 80 Year
  Sex: Male
  Weight: 69 kg

DRUGS (21)
  1. KENKETU ALBUMIN 25% I.V. BENESIS [Concomitant]
     Indication: FLUID REPLACEMENT
     Dosage: 100 ML, QD
     Route: 042
     Dates: start: 20160506, end: 20160506
  2. SENNOSIDE A+B CALCIUM [Concomitant]
     Active Substance: SENNOSIDES A AND B
     Indication: PRODUCT USED FOR UNKNOWN INDICATION
     Dosage: 24 MG, PRN
     Route: 048
  3. OTSUKA NORMAL SALINE [Concomitant]
     Dosage: 100 ML, QD
     Route: 042
     Dates: start: 20160314, end: 20160314
  4. NEOLAMIN 3B [Concomitant]
     Indication: DECREASED APPETITE
     Dosage: 10 ML, QD
     Route: 042
     Dates: start: 20160503, end: 20160508
  5. LIVACT [Concomitant]
     Active Substance: AMINO ACIDS
     Indication: PRODUCT USED FOR UNKNOWN INDICATION
     Dosage: 12.45 G, QD
     Route: 048
  6. SOLDEM 1 [Concomitant]
     Active Substance: DEXTROSE\SODIUM CHLORIDE\SODIUM LACTATE
     Indication: DECREASED APPETITE
     Dosage: 500 ML, QD
     Route: 042
     Dates: start: 20160503, end: 20160508
  7. TOLVAPTAN [Suspect]
     Active Substance: TOLVAPTAN
     Indication: FLUID RETENTION
     Dosage: 3.75 MG, QD IN THE MORNING
     Route: 048
     Dates: start: 20160301, end: 20160314
  8. SPIRONOLACTONE. [Suspect]
     Active Substance: SPIRONOLACTONE
     Indication: FLUID RETENTION
     Dosage: 50 MG, QD
     Route: 048
     Dates: end: 20160318
  9. SPIRONOLACTONE. [Suspect]
     Active Substance: SPIRONOLACTONE
     Dosage: 25 MG, QD
     Route: 048
     Dates: start: 20160319, end: 20160508
  10. CALONAL [Concomitant]
     Active Substance: ACETAMINOPHEN
     Indication: PYREXIA
     Dosage: 1 G, PRN
     Route: 048
  11. FUROSEMIDE. [Suspect]
     Active Substance: FUROSEMIDE
     Indication: FLUID RETENTION
     Dosage: 20 MG, QD
     Route: 042
     Dates: start: 20160504, end: 20160508
  12. URSODEOXYCHOLIC ACID [Concomitant]
     Active Substance: URSODIOL
     Indication: PRODUCT USED FOR UNKNOWN INDICATION
     Dosage: 600 MG, QD
     Route: 048
  13. SHAKUYAKUKANZOTO [Concomitant]
     Active Substance: HERBALS
     Indication: PRODUCT USED FOR UNKNOWN INDICATION
     Dosage: 2 SACHETS, QD
     Route: 048
     Dates: start: 20160505
  14. OTSUKA NORMAL SALINE [Concomitant]
     Indication: FLUID REPLACEMENT
     Dosage: 500 ML, QD
     Route: 042
     Dates: start: 20160308, end: 20160309
  15. FUROSEMIDE. [Suspect]
     Active Substance: FUROSEMIDE
     Indication: FLUID RETENTION
     Dosage: 20 MG, QD
     Route: 048
     Dates: end: 20160508
  16. LANSOPRAZOLE. [Concomitant]
     Active Substance: LANSOPRAZOLE
     Indication: PRODUCT USED FOR UNKNOWN INDICATION
     Dosage: 15 MG, QD
     Route: 048
  17. OTSUKA NORMAL SALINE [Concomitant]
     Dosage: 100 ML, QD
     Route: 042
     Dates: start: 20160311, end: 20160311
  18. TOLVAPTAN [Suspect]
     Active Substance: TOLVAPTAN
     Dosage: 7.5MG, QD IN THE MORNING
     Route: 048
     Dates: start: 20160315, end: 20160508
  19. SUREPOST [Concomitant]
     Active Substance: REPAGLINIDE
     Indication: PRODUCT USED FOR UNKNOWN INDICATION
     Dosage: 0.5 MG, QD
     Route: 048
     Dates: end: 20160317
  20. SUREPOST [Concomitant]
     Active Substance: REPAGLINIDE
     Dosage: 0.25 MG, QD
     Route: 048
     Dates: start: 20160318, end: 20160504
  21. CALONAL [Concomitant]
     Active Substance: ACETAMINOPHEN
     Indication: PAIN

REACTIONS (5)
  - Hepatic encephalopathy [Not Recovered/Not Resolved]
  - Alanine aminotransferase increased [Unknown]
  - Thirst [Recovered/Resolved]
  - Aspartate aminotransferase increased [Unknown]
  - Dehydration [Unknown]

NARRATIVE: CASE EVENT DATE: 20160302
